FAERS Safety Report 8153008-7 (Version None)
Quarter: 2012Q1

REPORT INFORMATION
  Report Type: 
  Country: None (occurrence: None)
  Receive Date: 20120221
  Receipt Date: 20120217
  Transmission Date: 20120608
  Serious: Yes (Life-Threatening, Hospitalization, Other)
  Sender: FDA-Public Use
  Company Number: GB-AMGEN-GBRSP2011068413

PATIENT
  Age: 42 Year
  Sex: Male
  Weight: 104 kg

DRUGS (10)
  1. DOXORUBICIN HCL [Suspect]
     Indication: DIFFUSE LARGE B-CELL LYMPHOMA
     Dosage: 110 MG, ONE TIME DOSE
     Route: 042
     Dates: start: 20111122
  2. PIRENZEPINE [Concomitant]
     Indication: SCHIZOPHRENIA
     Dosage: UNK
  3. CLOZAPINE [Suspect]
     Indication: SCHIZOPHRENIA
     Dosage: 200 MG, BID
     Route: 048
     Dates: start: 20100915, end: 20111201
  4. NEUPOGEN [Suspect]
     Indication: DIFFUSE LARGE B-CELL LYMPHOMA
     Dosage: 800 MG, ONE TIME DOSE
     Route: 042
     Dates: start: 20111123
  5. PREDNISOLONE [Suspect]
     Indication: DIFFUSE LARGE B-CELL LYMPHOMA
     Dosage: 60 MG, ONE TIME DOSE
     Dates: start: 20111122
  6. CLOZAPINE [Suspect]
     Dosage: 200 MG, BID
     Route: 048
     Dates: start: 20111202
  7. VINCRISTINE [Suspect]
     Indication: DIFFUSE LARGE B-CELL LYMPHOMA
     Dosage: 2 MG, ONE TIME DOSE
     Route: 042
     Dates: start: 20111122
  8. AMISULPRIDE [Concomitant]
     Indication: SCHIZOPHRENIA
     Dosage: 200 MG, BID
  9. CITALOPRAM HYDROBROMIDE [Concomitant]
     Indication: SCHIZOPHRENIA
     Dosage: 20 MG, UNK
  10. CYCLOPHOSPHAMIDE [Suspect]
     Indication: DIFFUSE LARGE B-CELL LYMPHOMA
     Dosage: 1600 MG, ONE TIME DOSE
     Route: 042
     Dates: start: 20111122

REACTIONS (7)
  - LEUKOPENIA [None]
  - NEUTROPHIL COUNT DECREASED [None]
  - DIFFUSE LARGE B-CELL LYMPHOMA STAGE II [None]
  - NEUTROPENIA [None]
  - WHITE BLOOD CELL COUNT DECREASED [None]
  - AGRANULOCYTOSIS [None]
  - DEEP VEIN THROMBOSIS [None]
